FAERS Safety Report 25762230 (Version 6)
Quarter: 2025Q4

REPORT INFORMATION
  Report Type: Report from Study
  Country: EU (occurrence: EU)
  Receive Date: 20250904
  Receipt Date: 20251113
  Transmission Date: 20260118
  Serious: Yes (Hospitalization)
  Sender: JOHNSON AND JOHNSON
  Company Number: EU-JNJFOC-20250601837

PATIENT
  Age: 41 Year
  Sex: Female

DRUGS (15)
  1. ESKETAMINE [Suspect]
     Active Substance: ESKETAMINE
     Indication: Depression
     Dosage: 28 MG (1 DEVICE)
     Route: 045
     Dates: start: 20230405, end: 20230405
  2. ESKETAMINE [Suspect]
     Active Substance: ESKETAMINE
     Dosage: 56 MG (2 DEVICES), OTHER THERAPY DATES: 08-APR-2023, 11-APR-2023, 13-APR-2023
     Route: 045
     Dates: start: 20230408, end: 20230413
  3. ESKETAMINE [Suspect]
     Active Substance: ESKETAMINE
     Dosage: 84 MG (3 DEVICES), OTHER THERAPY DATES: 18-APR-2023, 20-APR-2023, 25-APR-2023, 28-APR-2023, 02-MAY-2
     Route: 045
     Dates: start: 20230418, end: 20230605
  4. ESKETAMINE [Suspect]
     Active Substance: ESKETAMINE
     Dosage: 56 MG (2 DEVICES), OTHER THERAPY DATES: 12-JUN-2023, 19-JUN-2023, 21-JUN-2023, 26-JUN-2023, 03-JUL-2
     Route: 045
     Dates: start: 20230612, end: 20230918
  5. ESKETAMINE [Suspect]
     Active Substance: ESKETAMINE
     Dosage: 84 MG (3 DEVICES), OTHER THERAPY DATES: 25-SEP-2023, 02-OCT-2023, 09-OCT-2023, 23-OCT-2023, 30-OCT-2
     Route: 045
     Dates: start: 20230925, end: 20240402
  6. ESKETAMINE [Suspect]
     Active Substance: ESKETAMINE
     Dosage: 56 MG (2 DEVICES), 08-APR-2024
     Route: 045
     Dates: start: 20240408, end: 20240408
  7. ESKETAMINE [Suspect]
     Active Substance: ESKETAMINE
     Dosage: 84 MG (3 DEVICES), OTHER THERAPY DATES: 15-APR-2024, 22-APR-2024, 29-APR-2024, 06-MAY-2024, 13-MAY-2
     Route: 045
     Dates: start: 20240415, end: 20240819
  8. ESKETAMINE [Suspect]
     Active Substance: ESKETAMINE
     Dosage: 56 MG (2 DEVICES), 26-AUG-2024, 02-SEP-2024, 09-SEP-2024
     Route: 045
     Dates: start: 20240826, end: 20240909
  9. ESKETAMINE [Suspect]
     Active Substance: ESKETAMINE
     Dosage: 84 MG (3 DEVICES), OTHER THERAPY DATES: 16-SEP-2024, 23-SEP-2024, 30-SEP-2024, 07-OCT-2024
     Route: 045
     Dates: start: 20240916, end: 20241007
  10. ESKETAMINE [Suspect]
     Active Substance: ESKETAMINE
     Dosage: 56 MG (2 DEVICES), 14-OCT-2024, 21-OCT-2024, 28-OCT-2024, 04-NOV-2024, 11-NOV-2024, 18-NOV-2024
     Route: 045
     Dates: start: 20241014, end: 20241118
  11. ESKETAMINE [Suspect]
     Active Substance: ESKETAMINE
     Dosage: 84 MG (3 DEVICES), 25-NOV-2024
     Route: 045
     Dates: start: 20241125, end: 20241125
  12. ESKETAMINE [Suspect]
     Active Substance: ESKETAMINE
     Dosage: 56 MG (2 DEVICES), 02-DEC-2024, 09-DEC-2024
     Route: 045
     Dates: start: 20241202, end: 20241209
  13. ESKETAMINE [Suspect]
     Active Substance: ESKETAMINE
     Dosage: 84 MG (3 DEVICES), 16-DEC-2024, 23-DEC-2024, 30-DEC-2024, 13-JAN-2025, 20-JAN-2025, 27-JAN-2025, 04-
     Route: 045
     Dates: start: 20241216, end: 20250509
  14. ESKETAMINE [Suspect]
     Active Substance: ESKETAMINE
     Dosage: 56 MG (2 DEVICES), 12-MAY-2025
     Route: 045
     Dates: start: 20250512, end: 20250512
  15. ESKETAMINE [Suspect]
     Active Substance: ESKETAMINE
     Dosage: 84 MG (3 DEVICES), 19-MAY-2025, 26- MAY-2025, 30- MAY-2025, 02-JUN-2025, 06-JUN-2025, 10-JUN-2025, 1
     Route: 045
     Dates: start: 20250519, end: 20250819

REACTIONS (5)
  - Intentional overdose [Recovered/Resolved]
  - Influenza [Recovered/Resolved]
  - Diarrhoea [Recovered/Resolved]
  - Depressed mood [Recovered/Resolved]
  - Pyrexia [Recovered/Resolved]

NARRATIVE: CASE EVENT DATE: 20240408
